FAERS Safety Report 9550169 (Version 1)
Quarter: 2013Q3

REPORT INFORMATION
  Report Type: Spontaneous
  Country: MX (occurrence: MX)
  Receive Date: 20130924
  Receipt Date: 20130924
  Transmission Date: 20140515
  Serious: Yes (Other)
  Sender: FDA-Public Use
  Company Number: PHHY2013MX106149

PATIENT
  Sex: Female

DRUGS (2)
  1. EXFORGE HCT [Suspect]
     Indication: HYPERTENSION
     Dosage: 1 DF (160/5/12.5MG) DAILY
     Route: 048
     Dates: start: 20111130, end: 201205
  2. ANTIDEPRESSANTS [Concomitant]
     Dosage: UNK UKN, UNK

REACTIONS (5)
  - Cholelithiasis [Recovered/Resolved]
  - Urinary tract disorder [Not Recovered/Not Resolved]
  - Gastrointestinal disorder [Not Recovered/Not Resolved]
  - Eating disorder [Not Recovered/Not Resolved]
  - Abdominal pain [Not Recovered/Not Resolved]
